FAERS Safety Report 8477625-X (Version None)
Quarter: 2012Q2

REPORT INFORMATION
  Report Type: 
  Country: None (occurrence: None)
  Receive Date: 20120629
  Receipt Date: 20120626
  Transmission Date: 20120825
  Serious: No
  Sender: FDA-Public Use
  Company Number: US-PFIZER INC-2012154805

PATIENT
  Sex: Male
  Weight: 80.726 kg

DRUGS (1)
  1. LYRICA [Suspect]
     Indication: PERIPHERAL NERVE INJURY
     Dosage: 300 MG, 2X/DAY
     Dates: start: 20070101

REACTIONS (2)
  - HYPOAESTHESIA [None]
  - PARAESTHESIA [None]
